FAERS Safety Report 14170270 (Version 1)
Quarter: 2017Q4

REPORT INFORMATION
  Report Type: Spontaneous
  Country: US (occurrence: None)
  Receive Date: 20171108
  Receipt Date: 20171108
  Transmission Date: 20180321
  Serious: No
  Sender: FDA-Public Use
  Company Number: None

PATIENT
  Age: 37 Year
  Sex: Female

DRUGS (1)
  1. GLATIRAMER 40MG PFS INJ (12/BOX) (GLATIRAMER ACETATE) [Suspect]
     Active Substance: GLATIRAMER ACETATE
     Indication: MULTIPLE SCLEROSIS
     Route: 058
     Dates: start: 20171012

REACTIONS (3)
  - Product substitution issue [None]
  - Fatigue [None]
  - Drug ineffective [None]

NARRATIVE: CASE EVENT DATE: 20171104
